FAERS Safety Report 5558992-3 (Version None)
Quarter: 2007Q4

REPORT INFORMATION
  Report Type: 
  Country: None (occurrence: None)
  Receive Date: 20071214
  Receipt Date: 20070913
  Transmission Date: 20080405
  Serious: No
  Sender: FDA-Public Use
  Company Number: US-ABBOTT-07P-163-0417176-00

PATIENT
  Sex: Male
  Weight: 106.8 kg

DRUGS (4)
  1. HUMIRA [Suspect]
     Indication: PSORIASIS
     Route: 058
     Dates: start: 20070316
  2. HUMIRA [Suspect]
     Indication: PSORIATIC ARTHROPATHY
  3. METFORMIN HCL [Concomitant]
     Indication: DIABETES MELLITUS
     Route: 048
  4. NAPROXEN [Concomitant]
     Indication: PAIN
     Route: 048

REACTIONS (5)
  - BLISTER [None]
  - HAEMORRHAGIC DIATHESIS [None]
  - INCREASED TENDENCY TO BRUISE [None]
  - SKIN ATROPHY [None]
  - SKIN DISORDER [None]
